FAERS Safety Report 6655439-0 (Version None)
Quarter: 2010Q1

REPORT INFORMATION
  Report Type: 
  Country: None (occurrence: None)
  Receive Date: 20100326
  Receipt Date: 20100326
  Transmission Date: 20100710
  Serious: Yes (Hospitalization)
  Sender: FDA-Public Use
  Company Number: None

PATIENT
  Sex: Female
  Weight: 73.9 kg

DRUGS (5)
  1. CARBOPLATIN [Suspect]
     Dosage: 3097 MG
     Dates: end: 20100210
  2. CYCLOPHOSPHAMIDE [Suspect]
     Dosage: 2130 MG
     Dates: end: 20100317
  3. DOXORUBICIN HYDROCHLORIDE [Suspect]
     Dosage: 212 MG
     Dates: end: 20100317
  4. G-CSF (FILGRASTIM, AMGEN) [Suspect]
     Dosage: 2400 MCG
     Dates: end: 20100322
  5. TAXOL [Suspect]
     Dosage: 1800 MG
     Dates: end: 20100224

REACTIONS (4)
  - DYSPNOEA [None]
  - NEUTROPHIL COUNT DECREASED [None]
  - PNEUMONIA [None]
  - PULMONARY EMBOLISM [None]
